FAERS Safety Report 23121870 (Version 1)
Quarter: 2023Q4

REPORT INFORMATION
  Report Type: Spontaneous
  Country: GB (occurrence: GB)
  Receive Date: 20231030
  Receipt Date: 20231030
  Transmission Date: 20240110
  Serious: Yes (Other)
  Sender: FDA-Public Use
  Company Number: GB-JNJFOC-20231069275

PATIENT
  Sex: Female

DRUGS (2)
  1. ESTRADIOL\NORETHINDRONE ACETATE [Interacting]
     Active Substance: ESTRADIOL\NORETHINDRONE ACETATE
     Indication: Hormone replacement therapy
     Dosage: 1 PATCH TWICE PER WEEK
     Route: 065
     Dates: end: 20231011
  2. IBUPROFEN [Suspect]
     Active Substance: IBUPROFEN
     Indication: Chronic fatigue syndrome
     Route: 065
     Dates: start: 20231003, end: 20231008

REACTIONS (2)
  - Pulmonary embolism [Recovering/Resolving]
  - Drug interaction [Unknown]

NARRATIVE: CASE EVENT DATE: 20231009
